FAERS Safety Report 5223422-8 (Version None)
Quarter: 2007Q1

REPORT INFORMATION
  Report Type: 
  Country: None (occurrence: None)
  Receive Date: 20070124
  Receipt Date: 20070110
  Transmission Date: 20070707
  Serious: Yes (Hospitalization)
  Sender: FDA-Public Use
  Company Number: SP-2007-003399

PATIENT
  Age: 68 Year
  Sex: Male
  Weight: 87.9 kg

DRUGS (7)
  1. OLMESARTAN MEDOXOMIL [Suspect]
     Indication: MICROALBUMINURIA
     Dosage: BLINDED
     Dates: start: 20050905, end: 20061224
  2. OLMESARTAN MEDOXOMIL [Suspect]
     Indication: PROPHYLAXIS
     Dosage: BLINDED
     Dates: start: 20050905, end: 20061224
  3. NORVASK [Concomitant]
  4. YENTREVE [Concomitant]
  5. GLUCOPHAGE [Concomitant]
  6. DIAMICRON [Concomitant]
  7. ACTOS [Concomitant]

REACTIONS (5)
  - CORONARY ARTERY DISEASE [None]
  - CORONARY ARTERY STENOSIS [None]
  - HYPERTENSION [None]
  - MYOCARDIAL INFARCTION [None]
  - PULMONARY OEDEMA [None]
